FAERS Safety Report 6917115-6 (Version None)
Quarter: 2010Q3

REPORT INFORMATION
  Report Type: 
  Country: None (occurrence: None)
  Receive Date: 20100810
  Receipt Date: 20100803
  Transmission Date: 20110219
  Serious: Yes (Hospitalization, Disabling)
  Sender: FDA-Public Use
  Company Number: B0668788A

PATIENT
  Sex: Male

DRUGS (20)
  1. ZEFIX [Suspect]
     Indication: HEPATIC CIRRHOSIS
     Dosage: 100MG PER DAY
     Route: 048
     Dates: start: 20040224, end: 20060602
  2. ZEFIX [Suspect]
     Dosage: 100MG PER DAY
     Route: 048
     Dates: start: 20060824, end: 20061004
  3. GLAKAY [Concomitant]
     Indication: HEPATIC CIRRHOSIS
     Route: 048
  4. UNKNOWN DRUG [Concomitant]
     Indication: HEPATIC CIRRHOSIS
     Dosage: .5MG PER DAY
     Route: 048
     Dates: start: 20061005
  5. PURSENNID [Concomitant]
     Indication: HEPATECTOMY
     Route: 048
  6. RHYTHMY [Concomitant]
     Indication: HEPATECTOMY
     Route: 048
  7. UNKNOWN DRUG [Concomitant]
     Indication: HEPATECTOMY
     Route: 042
  8. MORPHINE [Concomitant]
     Indication: HEPATECTOMY
     Route: 042
  9. UNKNOWN DRUG [Concomitant]
     Route: 042
  10. CEFMETAZON [Concomitant]
     Indication: HEPATECTOMY
  11. SOLDEM 3A [Concomitant]
     Indication: HEPATECTOMY
     Route: 042
  12. NEO-MINOPHAGEN-C [Concomitant]
     Indication: HEPATECTOMY
     Route: 042
  13. OMEPRAL [Concomitant]
     Indication: HEPATECTOMY
     Route: 042
  14. UNKNOWN DRUG [Concomitant]
     Route: 042
  15. VITAMEDIN [Concomitant]
     Indication: HEPATECTOMY
     Route: 042
  16. VITACIMIN [Concomitant]
     Indication: HEPATECTOMY
  17. UNKNOWN DRUG [Concomitant]
     Route: 042
  18. UNKNOWN DRUG [Concomitant]
     Route: 008
  19. URSO 250 [Concomitant]
     Indication: HEPATECTOMY
     Route: 048
  20. CEFMETAZON [Concomitant]

REACTIONS (2)
  - HYPERTENSION [None]
  - TYPE 2 DIABETES MELLITUS [None]
